FAERS Safety Report 8368940-9 (Version None)
Quarter: 2012Q2

REPORT INFORMATION
  Report Type: 
  Country: None (occurrence: None)
  Receive Date: 20120516
  Receipt Date: 20120507
  Transmission Date: 20120825
  Serious: Yes (Death)
  Sender: FDA-Public Use
  Company Number: 2012MA003555

PATIENT
  Age: 82 Year
  Sex: Female

DRUGS (1)
  1. VENLAFAXINE HCL [Suspect]
     Indication: DEPRESSION

REACTIONS (7)
  - ASTHENIA [None]
  - DEPRESSION [None]
  - HYPOPHAGIA [None]
  - CONDITION AGGRAVATED [None]
  - SOCIAL AVOIDANT BEHAVIOUR [None]
  - SEPSIS [None]
  - GENERAL PHYSICAL HEALTH DETERIORATION [None]
